FAERS Safety Report 17730545 (Version 1)
Quarter: 2020Q2

REPORT INFORMATION
  Report Type: Spontaneous
  Country: NL (occurrence: NL)
  Receive Date: 20200430
  Receipt Date: 20200430
  Transmission Date: 20200714
  Serious: Yes (Other)
  Sender: FDA-Public Use
  Company Number: NL-MYLANLABS-2020M1042409

PATIENT
  Age: 64 Year
  Sex: Female

DRUGS (4)
  1. METHYLPREDNISOLONE. [Suspect]
     Active Substance: METHYLPREDNISOLONE
     Indication: SUSAC^S SYNDROME
     Dosage: UNK
     Route: 065
  2. CYCLOPHOSPHAMIDE. [Suspect]
     Active Substance: CYCLOPHOSPHAMIDE
     Indication: SUSAC^S SYNDROME
     Dosage: UNK
     Route: 065
  3. AZATHIOPRINE. [Suspect]
     Active Substance: AZATHIOPRINE
     Indication: SUSAC^S SYNDROME
     Dosage: UNK
     Route: 065
  4. PREDNISONE. [Concomitant]
     Active Substance: PREDNISONE
     Indication: SUSAC^S SYNDROME
     Dosage: 60 MG/KG, QD
     Route: 065

REACTIONS (5)
  - Haemorrhage [Unknown]
  - Cognitive disorder [Unknown]
  - Arterial occlusive disease [Unknown]
  - Vision blurred [Unknown]
  - Product use in unapproved indication [Unknown]
